FAERS Safety Report 7982488-2 (Version None)
Quarter: 2011Q4

REPORT INFORMATION
  Report Type: 
  Country: None (occurrence: None)
  Receive Date: 20111215
  Receipt Date: 20111206
  Transmission Date: 20120403
  Serious: Yes (Death)
  Sender: FDA-Public Use
  Company Number: IT-TEVA-312978ISR

PATIENT
  Sex: Female

DRUGS (1)
  1. VENLAFAXINA CLORIDRATO [Suspect]

REACTIONS (3)
  - AGRANULOCYTOSIS [None]
  - PANCYTOPENIA [None]
  - THROMBOCYTOPENIA [None]
